FAERS Safety Report 21210839 (Version 2)
Quarter: 2022Q3

REPORT INFORMATION
  Report Type: Spontaneous
  Country: US (occurrence: US)
  Receive Date: 20220815
  Receipt Date: 20220817
  Transmission Date: 20221027
  Serious: No
  Sender: FDA-Public Use
  Company Number: US-GLAXOSMITHKLINE-US2022AMR116847

PATIENT
  Age: 64 Year
  Sex: Female
  Weight: 72.57 kg

DRUGS (8)
  1. ZEJULA [Suspect]
     Active Substance: NIRAPARIB
     Indication: Ovarian cancer
     Dosage: 200 MG, QD
     Route: 048
     Dates: start: 20220721
  2. VITAMIN D3 [Concomitant]
     Active Substance: CHOLECALCIFEROL
     Indication: Product used for unknown indication
     Dosage: 50 MCG/MG
  3. CRANBERRY CAPSULES [Concomitant]
     Indication: Product used for unknown indication
     Dosage: 200 MG
  4. TURMERIC CAPSULE [Concomitant]
     Indication: Product used for unknown indication
     Dosage: 400 MG
  5. VITAMIN B-6 TABLET [Concomitant]
     Indication: Product used for unknown indication
     Dosage: 100 MG
  6. TRAZODONE HCL TABLET [Concomitant]
     Indication: Product used for unknown indication
     Dosage: 100 MG
  7. ZOLOFT TABLET [Concomitant]
     Indication: Product used for unknown indication
     Dosage: 100 MG
  8. MIRALAX [Concomitant]
     Active Substance: POLYETHYLENE GLYCOL 3350
     Indication: Constipation
     Dosage: UNK

REACTIONS (5)
  - Headache [Unknown]
  - Dizziness [Unknown]
  - Nausea [Unknown]
  - Pain [Unknown]
  - Vomiting [Unknown]

NARRATIVE: CASE EVENT DATE: 20220801
